FAERS Safety Report 9383747 (Version 3)
Quarter: 2013Q3

REPORT INFORMATION
  Report Type: Spontaneous
  Country: US (occurrence: US)
  Receive Date: 20130704
  Receipt Date: 20130919
  Transmission Date: 20140515
  Serious: No
  Sender: FDA-Public Use
  Company Number: US-PFIZER INC-2013197172

PATIENT
  Age: 82 Year
  Sex: Male
  Weight: 74.83 kg

DRUGS (4)
  1. TOVIAZ [Suspect]
     Indication: BLADDER DISORDER
     Dosage: 8 MG, 1X/DAY
     Dates: start: 20130621
  2. TOVIAZ [Suspect]
     Indication: POLLAKIURIA
  3. TOVIAZ [Suspect]
     Indication: HYPERTONIC BLADDER
  4. SIMVASTATIN [Concomitant]
     Dosage: UNK

REACTIONS (1)
  - Drug ineffective [Unknown]
